FAERS Safety Report 17829814 (Version 1)
Quarter: 2020Q2

REPORT INFORMATION
  Report Type: Spontaneous
  Country: US (occurrence: US)
  Receive Date: 20200527
  Receipt Date: 20200527
  Transmission Date: 20200714
  Serious: No
  Sender: FDA-Public Use
  Company Number: None

PATIENT
  Age: 39 Year
  Sex: Male
  Weight: 114 kg

DRUGS (2)
  1. PALYNZIQ [Concomitant]
     Active Substance: PEGVALIASE-PQPZ
     Dates: start: 20200514
  2. PALYNZIQ [Suspect]
     Active Substance: PEGVALIASE-PQPZ
     Indication: PHENYLKETONURIA
     Dosage: ?          OTHER FREQUENCY:WEEKLY;?
     Route: 058
     Dates: start: 20200514

REACTIONS (5)
  - Swelling [None]
  - Pruritus [None]
  - Erythema [None]
  - Nausea [None]
  - Induration [None]

NARRATIVE: CASE EVENT DATE: 20200526
